FAERS Safety Report 7173710-3 (Version None)
Quarter: 2010Q4

REPORT INFORMATION
  Report Type: 
  Country: None (occurrence: None)
  Receive Date: 20101202
  Receipt Date: 20101116
  Transmission Date: 20110411
  Serious: Yes (Hospitalization, Other)
  Sender: FDA-Public Use
  Company Number: 019442

PATIENT
  Age: 69 Year
  Sex: Female

DRUGS (5)
  1. KEPPRA [Suspect]
     Dates: end: 20100101
  2. VIMPAT [Suspect]
     Dates: end: 20100101
  3. VALPROATE SODIUM [Concomitant]
  4. PREGABALIN [Concomitant]
  5. CLONAZEPAM [Concomitant]

REACTIONS (3)
  - DEMENTIA ALZHEIMER'S TYPE [None]
  - INTENTIONAL SELF-INJURY [None]
  - SUICIDAL IDEATION [None]
